FAERS Safety Report 16827293 (Version 1)
Quarter: 2019Q3

REPORT INFORMATION
  Report Type: Report from Study
  Country: None (occurrence: FR)
  Receive Date: 20190919
  Receipt Date: 20190919
  Transmission Date: 20191005
  Serious: Yes (Hospitalization)
  Sender: FDA-Public Use
  Company Number: FR-ABBVIE-19K-056-2862564-00

PATIENT
  Age: 71 Year
  Sex: Female
  Weight: 60 kg

DRUGS (2)
  1. DUODOPA [Suspect]
     Active Substance: CARBIDOPA\LEVODOPA
     Indication: PARKINSON^S DISEASE
     Dosage: MORNING 4 ML, EXTRA DOSE 4 ML, CONTINUOUS FLOW RATE DURING DAY 4.3ML
     Route: 050
     Dates: start: 201705
  2. DUODOPA [Suspect]
     Active Substance: CARBIDOPA\LEVODOPA
     Dosage: 4.3 ML/HOUR, FREQUENCY: 7 - 21 HOURS
     Route: 050
     Dates: start: 20190526

REACTIONS (7)
  - Stoma site abscess [Not Recovered/Not Resolved]
  - Abdominal distension [Unknown]
  - Stoma site pain [Unknown]
  - Device occlusion [Unknown]
  - Incorrect route of product administration [Unknown]
  - Stoma site discharge [Not Recovered/Not Resolved]
  - Fungal infection [Unknown]

NARRATIVE: CASE EVENT DATE: 20190711
